FAERS Safety Report 10854628 (Version 1)
Quarter: 2015Q1

REPORT INFORMATION
  Report Type: Spontaneous
  Country: JP (occurrence: None)
  Receive Date: 20150218
  Receipt Date: 20150218
  Transmission Date: 20150721
  Serious: Yes (Other)
  Sender: FDA-Public Use
  Company Number: COR_00248_2015

PATIENT
  Age: 38 Year
  Sex: Male

DRUGS (4)
  1. ETOPOSIDE (ETOPOSIDE) [Suspect]
     Active Substance: ETOPOSIDE
     Indication: SEMINOMA
     Dosage: 180 MG/DAY X 5
  2. BLEOMYCIN [Suspect]
     Active Substance: BLEOMYCIN SULFATE
     Indication: SEMINOMA
     Dosage: 30 MG/DAY X 2
  3. DEXAMETHASONE (DEXAMETHASONE) [Suspect]
     Active Substance: DEXAMETHASONE
     Indication: PRODUCT USED FOR UNKNOWN INDICATION
     Dosage: 6.6 MG/DAY X 5
  4. CISPLATIN (CISPLATIN) [Suspect]
     Active Substance: CISPLATIN
     Indication: SEMINOMA
     Dosage: 30 MG/DAY X 5

REACTIONS (1)
  - Acute myocardial infarction [None]
